FAERS Safety Report 5243993-5 (Version None)
Quarter: 2007Q1

REPORT INFORMATION
  Report Type: 
  Country: None (occurrence: None)
  Receive Date: 20070222
  Receipt Date: 20070219
  Transmission Date: 20070707
  Serious: Yes (Other)
  Sender: FDA-Public Use
  Company Number: 2007UW03227

PATIENT
  Age: 59 Year
  Sex: Male

DRUGS (4)
  1. SEROQUEL [Suspect]
     Route: 048
  2. PRILOSEC [Concomitant]
  3. KLONOPIN [Concomitant]
  4. SINGULAIR [Concomitant]

REACTIONS (3)
  - ELECTROCARDIOGRAM ST SEGMENT DEPRESSION [None]
  - MUSCLE RIGIDITY [None]
  - SYNCOPE [None]
